FAERS Safety Report 4643829-7 (Version None)
Quarter: 2005Q2

REPORT INFORMATION
  Report Type: 
  Country: None (occurrence: None)
  Receive Date: 20050425
  Receipt Date: 20030730
  Transmission Date: 20051028
  Serious: Yes (Hospitalization)
  Sender: FDA-Public Use
  Company Number: US-MERCK-0307USA03456

PATIENT
  Age: 71 Year
  Sex: Female
  Weight: 73 kg

DRUGS (9)
  1. VIOXX [Suspect]
     Indication: OSTEOARTHRITIS
     Route: 048
     Dates: start: 20010701, end: 20010824
  2. ZESTRIL [Concomitant]
     Indication: HYPERTENSION
     Route: 065
     Dates: start: 19950101
  3. PRILOSEC [Concomitant]
     Route: 065
  4. XANAX [Concomitant]
     Route: 065
     Dates: start: 20000101, end: 20031001
  5. ZYRTEC [Concomitant]
     Route: 065
  6. ASPIRIN [Concomitant]
     Indication: THROMBOSIS PROPHYLAXIS
     Route: 065
     Dates: start: 19980101
  7. CELEBREX [Concomitant]
     Route: 065
  8. PROZAC [Concomitant]
     Route: 065
     Dates: start: 19990101
  9. NAPROXEN [Concomitant]
     Route: 065

REACTIONS (36)
  - ADNEXA UTERI MASS [None]
  - ANXIETY [None]
  - CARDIAC MURMUR [None]
  - CELLULITIS [None]
  - CORONARY ARTERY DISEASE [None]
  - CORONARY ARTERY STENOSIS [None]
  - CORONARY ARTERY THROMBOSIS [None]
  - DEPRESSION [None]
  - DRUG HYPERSENSITIVITY [None]
  - DYSPNOEA [None]
  - EMOTIONAL DISTRESS [None]
  - EYELID PTOSIS [None]
  - FATIGUE [None]
  - FUNGAL INFECTION [None]
  - HAEMANGIOMA [None]
  - INSOMNIA [None]
  - MACULAR DEGENERATION [None]
  - MYOCARDIAL INFARCTION [None]
  - NERVOUSNESS [None]
  - OEDEMA [None]
  - OEDEMA PERIPHERAL [None]
  - OSTEOPOROSIS [None]
  - PALPITATIONS [None]
  - POLLAKIURIA [None]
  - POSTNASAL DRIP [None]
  - RADICULOPATHY [None]
  - RASH [None]
  - RENAL FAILURE [None]
  - SINUS DISORDER [None]
  - SINUSITIS [None]
  - SNORING [None]
  - SPINAL COLUMN STENOSIS [None]
  - SPINAL OSTEOARTHRITIS [None]
  - URETHRITIS [None]
  - VISUAL DISTURBANCE [None]
  - WEIGHT INCREASED [None]
